FAERS Safety Report 5787254-4 (Version None)
Quarter: 2008Q2

REPORT INFORMATION
  Report Type: 
  Country: None (occurrence: None)
  Receive Date: 20080625
  Receipt Date: 20070905
  Transmission Date: 20081010
  Serious: No
  Sender: FDA-Public Use
  Company Number: US-ASTRAZENECA-2007UW20896

PATIENT
  Age: 72 Year
  Sex: Female
  Weight: 66.7 kg

DRUGS (16)
  1. PULMICORT FLEXHALER [Suspect]
     Indication: ASTHMA
     Dosage: 1 PUFF BID
     Route: 055
     Dates: start: 20070801
  2. DYNACIRC CR [Concomitant]
  3. ALLEGRA [Concomitant]
  4. SINGULAIR [Concomitant]
  5. BENICAR [Concomitant]
  6. ACIPHEX [Concomitant]
  7. NASACORT AQ [Concomitant]
  8. SYNTHROID [Concomitant]
  9. NEURONTIN [Concomitant]
  10. INDAPAMIDE [Concomitant]
  11. LORAZEPAM [Concomitant]
  12. POTASSIUM CHLORIDE [Concomitant]
  13. CHLORIDE [Concomitant]
  14. ATENOLOL [Concomitant]
  15. ASPIRIN [Concomitant]
  16. XOPENEX [Concomitant]

REACTIONS (2)
  - DYSPNOEA [None]
  - FATIGUE [None]
